FAERS Safety Report 21975240 (Version 1)
Quarter: 2023Q1

REPORT INFORMATION
  Report Type: Other
  Country: IT (occurrence: None)
  Receive Date: 20230210
  Receipt Date: 20230210
  Transmission Date: 20230417
  Serious: Yes (Hospitalization, Other)
  Sender: FDA-Public Use
  Company Number: IT-ROCHE-3281151

PATIENT
  Age: 47 Year
  Sex: Male

DRUGS (1)
  1. RITUXIMAB [Suspect]
     Active Substance: RITUXIMAB
     Indication: Mantle cell lymphoma
     Dosage: LAST ADMINISTRATION OF RITUXIMAB IN DECEMBER 2021
     Route: 065
     Dates: end: 202112

REACTIONS (4)
  - COVID-19 [Recovered/Resolved]
  - Lower respiratory tract infection bacterial [Recovered/Resolved]
  - COVID-19 pneumonia [Recovered/Resolved]
  - Disease progression [Recovering/Resolving]

NARRATIVE: CASE EVENT DATE: 20220101
